FAERS Safety Report 24905704 (Version 1)
Quarter: 2025Q1

REPORT INFORMATION
  Report Type: Report from Study
  Country: US (occurrence: US)
  Receive Date: 20250130
  Receipt Date: 20250130
  Transmission Date: 20250409
  Serious: No
  Sender: HRA PHARMA
  Company Number: US-ORG100014127-2024000255

PATIENT
  Age: 77 Year
  Sex: Female

DRUGS (3)
  1. METOPIRONE [Suspect]
     Active Substance: METYRAPONE
     Indication: Cushing^s syndrome
     Dosage: 250 MG; 4 CAPSULES THREE TIMES DAILY
     Route: 048
     Dates: start: 20240814
  2. LEVOTHYROXIN TAB 25MCG [Concomitant]
     Indication: Product used for unknown indication
  3. POT CHLORIDE CAP 8MEQ ER [Concomitant]
     Indication: Product used for unknown indication

REACTIONS (4)
  - Nausea [Not Recovered/Not Resolved]
  - Vomiting [Not Recovered/Not Resolved]
  - Abdominal discomfort [Not Recovered/Not Resolved]
  - Off label use [Unknown]

NARRATIVE: CASE EVENT DATE: 20240814
